FAERS Safety Report 16854900 (Version 1)
Quarter: 2019Q3

REPORT INFORMATION
  Report Type: Spontaneous
  Country: US (occurrence: US)
  Receive Date: 20190926
  Receipt Date: 20190926
  Transmission Date: 20191005
  Serious: No
  Sender: FDA-Public Use
  Company Number: US-IGSA-SR10007671

PATIENT
  Age: 1 Month
  Sex: Male
  Weight: 4.71 kg

DRUGS (14)
  1. DIPHENHYDRAMINE. [Concomitant]
     Active Substance: DIPHENHYDRAMINE
     Dosage: 0.5 MG/KG, SINGLE
     Dates: start: 20190104
  2. ALBUTEIN [Suspect]
     Active Substance: ALBUMIN HUMAN
     Dosage: UNK
     Route: 042
     Dates: start: 20190114, end: 20190115
  3. ALBUTEIN [Suspect]
     Active Substance: ALBUMIN HUMAN
     Dosage: UNK
     Route: 042
     Dates: start: 20190108, end: 20190115
  4. ALBUTEIN [Suspect]
     Active Substance: ALBUMIN HUMAN
     Dosage: UNK
     Route: 042
     Dates: start: 20190102, end: 20190108
  5. DIPHENHYDRAMINE. [Concomitant]
     Active Substance: DIPHENHYDRAMINE
     Indication: PREMEDICATION
     Dosage: 0.5 MG/KG, SINGLE
     Dates: start: 20190102
  6. SMOFLIPID [Concomitant]
     Active Substance: FISH OIL\MEDIUM-CHAIN TRIGLYCERIDES\OLIVE OIL\SOYBEAN OIL
  7. MIDAZOLAM [Concomitant]
     Active Substance: MIDAZOLAM HYDROCHLORIDE
  8. ALBUTEIN [Suspect]
     Active Substance: ALBUMIN HUMAN
     Dosage: UNK
     Route: 042
     Dates: start: 20190104, end: 20190115
  9. ALBUTEIN [Suspect]
     Active Substance: ALBUMIN HUMAN
     Indication: LYMPHATIC OBSTRUCTION
     Dosage: 1.9 G, TID
     Route: 042
     Dates: start: 20181228, end: 20181228
  10. ALBUTEIN [Suspect]
     Active Substance: ALBUMIN HUMAN
     Indication: ASCITES
     Dosage: UNK
     Route: 042
     Dates: start: 20181218
  11. ALBUTEIN [Suspect]
     Active Substance: ALBUMIN HUMAN
     Dosage: UNK
     Route: 042
     Dates: start: 20181222
  12. ALBUTEIN [Suspect]
     Active Substance: ALBUMIN HUMAN
     Dosage: UNK
     Route: 042
     Dates: start: 20190115, end: 20190115
  13. MORPHINE [Concomitant]
     Active Substance: MORPHINE
  14. TPN [Concomitant]
     Active Substance: AMINO ACIDS\DEXTROSE\ELECTROLYTES NOS\SOYBEAN OIL

REACTIONS (3)
  - Rash [Recovered/Resolved]
  - Agitation [Recovered/Resolved]
  - Oxygen saturation decreased [Recovered/Resolved]

NARRATIVE: CASE EVENT DATE: 20181228
